FAERS Safety Report 7437330-5 (Version None)
Quarter: 2011Q2

REPORT INFORMATION
  Report Type: 
  Country: None (occurrence: None)
  Receive Date: 20110426
  Receipt Date: 20110419
  Transmission Date: 20111010
  Serious: Yes (Death)
  Sender: FDA-Public Use
  Company Number: JP-SANOFI-AVENTIS-2011SA024972

PATIENT
  Age: 60 Year
  Sex: Male

DRUGS (1)
  1. ELPLAT [Suspect]

REACTIONS (1)
  - NEUTROPENIA [None]
